FAERS Safety Report 16599642 (Version 1)
Quarter: 2019Q3

REPORT INFORMATION
  Report Type: Spontaneous
  Country: FR (occurrence: FR)
  Receive Date: 20190720
  Receipt Date: 20190720
  Transmission Date: 20191004
  Serious: Yes (Hospitalization, Other)
  Sender: FDA-Public Use
  Company Number: FR-AUROBINDO-AUR-APL-2019-041955

PATIENT

DRUGS (6)
  1. DOLIPRANE [Interacting]
     Active Substance: ACETAMINOPHEN
     Indication: PRODUCT USED FOR UNKNOWN INDICATION
     Dosage: 3 GRAM, DAILY
     Route: 048
     Dates: start: 2014
  2. LASILIX [Concomitant]
     Active Substance: FUROSEMIDE
     Indication: PRODUCT USED FOR UNKNOWN INDICATION
     Dosage: 60 MILLIGRAM, DAILY (1-0-0)
     Route: 048
     Dates: start: 2013
  3. COUMADINE [Suspect]
     Active Substance: WARFARIN SODIUM
     Indication: PRODUCT USED FOR UNKNOWN INDICATION
     Dosage: 6 MILLIGRAM, DAILY (0-0-1)
     Route: 048
     Dates: start: 2014
  4. ESCITALOPRAM [Suspect]
     Active Substance: ESCITALOPRAM OXALATE
     Indication: PRODUCT USED FOR UNKNOWN INDICATION
     Dosage: 10 MILLIGRAM, DAILY (1-0-0)
     Route: 048
     Dates: start: 2014
  5. DIFFU K [Concomitant]
     Active Substance: POTASSIUM CHLORIDE
     Indication: PRODUCT USED FOR UNKNOWN INDICATION
     Dosage: 600 MILLIGRAM, DAILY (1-0-0)
     Route: 048
     Dates: start: 2014
  6. PANTOPRAZOLE [Interacting]
     Active Substance: PANTOPRAZOLE
     Indication: PRODUCT USED FOR UNKNOWN INDICATION
     Dosage: 10 MILLIGRAM, DAILY (0-0-1)
     Route: 048
     Dates: start: 2013

REACTIONS (1)
  - Haemorrhage [Recovered/Resolved]

NARRATIVE: CASE EVENT DATE: 20190603
